FAERS Safety Report 7521745-0 (Version None)
Quarter: 2011Q2

REPORT INFORMATION
  Report Type: 
  Country: None (occurrence: None)
  Receive Date: 20110524
  Receipt Date: 20110512
  Transmission Date: 20111010
  Serious: Yes (Hospitalization, Other)
  Sender: FDA-Public Use
  Company Number: 2010SP038557

PATIENT
  Age: 30 Year
  Sex: Female
  Weight: 86.1834 kg

DRUGS (10)
  1. WELLBUTRIN [Concomitant]
  2. HERBAL BALANCE [Concomitant]
  3. PRILOSEC [Concomitant]
  4. NUVARING [Suspect]
     Indication: PREMENSTRUAL SYNDROME
     Dates: start: 20030501, end: 20080728
  5. NUVARING [Suspect]
     Indication: CONTRACEPTION
     Dates: start: 20030501, end: 20080728
  6. NUVARING [Suspect]
     Indication: MENSTRUAL CYCLE MANAGEMENT
     Dates: start: 20030501, end: 20080728
  7. NUVARING [Suspect]
     Indication: ACNE
     Dates: start: 20030501, end: 20080728
  8. ZOLOFT [Concomitant]
  9. ASPIRIN [Concomitant]
  10. METABOLIZERS (HERBAL PREPARATION) [Concomitant]

REACTIONS (18)
  - BREAST PAIN [None]
  - ALOPECIA [None]
  - POLYMENORRHOEA [None]
  - GASTROENTERITIS [None]
  - FIBROCYSTIC BREAST DISEASE [None]
  - FIBRIN D DIMER INCREASED [None]
  - MOOD SWINGS [None]
  - DEPRESSION [None]
  - TENDON INJURY [None]
  - STRESS [None]
  - OVARIAN CYST [None]
  - HYPERCOAGULATION [None]
  - TACHYCARDIA [None]
  - DEEP VEIN THROMBOSIS [None]
  - PULMONARY EMBOLISM [None]
  - PREMENSTRUAL SYNDROME [None]
  - TENDONITIS [None]
  - JOINT SPRAIN [None]
